FAERS Safety Report 6582742-5 (Version None)
Quarter: 2010Q1

REPORT INFORMATION
  Report Type: 
  Country: None (occurrence: None)
  Receive Date: 20100216
  Receipt Date: 20100205
  Transmission Date: 20100710
  Serious: Yes (Hospitalization, Other)
  Sender: FDA-Public Use
  Company Number: US-PFIZER INC-2009296184

PATIENT
  Sex: Female
  Weight: 58.957 kg

DRUGS (8)
  1. LIPITOR [Suspect]
     Indication: BLOOD CHOLESTEROL INCREASED
     Dosage: 40 MG, 1X/DAY
     Route: 048
     Dates: start: 20080214, end: 20090719
  2. LIPITOR [Suspect]
     Indication: HYPERTENSION
  3. LIPITOR [Suspect]
     Indication: CARDIAC FAILURE CONGESTIVE
  4. CARVEDILOL [Concomitant]
     Dosage: 25 MG, 2X/DAY
  5. ASPIRIN [Concomitant]
     Dosage: 81 MG, 1X/DAY
  6. HYDROCHLOROTHIAZIDE [Concomitant]
     Dosage: 25 MG, 1X/DAY
  7. HYDROCHLOROTHIAZIDE [Concomitant]
  8. VALSARTAN [Concomitant]
     Dosage: 160 MG, UNK

REACTIONS (8)
  - BLOOD CALCIUM DECREASED [None]
  - BLOOD MAGNESIUM DECREASED [None]
  - CHOLECYSTECTOMY [None]
  - HYPOTENSION [None]
  - ILL-DEFINED DISORDER [None]
  - LIVER FUNCTION TEST ABNORMAL [None]
  - MALAISE [None]
  - RENAL IMPAIRMENT [None]
